FAERS Safety Report 6679379-6 (Version None)
Quarter: 2010Q2

REPORT INFORMATION
  Report Type: 
  Country: None (occurrence: None)
  Receive Date: 20100413
  Receipt Date: 20100405
  Transmission Date: 20101027
  Serious: Yes (Hospitalization)
  Sender: FDA-Public Use
  Company Number: JP-ROCHE-647002

PATIENT
  Sex: Female
  Weight: 51.2 kg

DRUGS (16)
  1. TOCILIZUMAB [Suspect]
     Indication: RHEUMATOID ARTHRITIS
     Route: 041
     Dates: start: 20081104, end: 20081104
  2. TOCILIZUMAB [Suspect]
     Route: 041
     Dates: start: 20081202, end: 20081202
  3. TOCILIZUMAB [Suspect]
     Route: 041
     Dates: start: 20090105, end: 20090105
  4. TOCILIZUMAB [Suspect]
     Route: 041
     Dates: start: 20090209, end: 20090209
  5. TOCILIZUMAB [Suspect]
     Route: 041
     Dates: start: 20090309, end: 20090309
  6. TOCILIZUMAB [Suspect]
     Route: 041
     Dates: start: 20090406, end: 20090406
  7. TOCILIZUMAB [Suspect]
     Route: 041
     Dates: start: 20090518, end: 20090518
  8. TOCILIZUMAB [Suspect]
     Route: 041
     Dates: start: 20090629, end: 20090629
  9. METHOTREXATE [Suspect]
     Indication: RHEUMATOID ARTHRITIS
     Dosage: NOTE: DIVIDED INTO 3 DOSES, DRUG:METOLATE(METHOTREXATE)
     Route: 048
     Dates: end: 20090208
  10. METHOTREXATE [Suspect]
     Dosage: NOTE: DIVIDED INTO 3 DOSES
     Route: 048
     Dates: start: 20090209
  11. PREDNISOLONE [Concomitant]
     Dosage: UNKNOWNDRUG(PREDNISOLONE)
     Route: 048
  12. MOBIC [Concomitant]
     Route: 048
  13. OMEPRAL [Concomitant]
     Dosage: FORM:ENTERIC COATING DRUG
     Route: 048
  14. COTRIM [Concomitant]
     Dosage: FORM:GRANULATED POWDER
     Route: 048
  15. FOLIC ACID [Concomitant]
     Route: 048
  16. KLARICID [Concomitant]
     Route: 048

REACTIONS (2)
  - MELAENA [None]
  - PLATELET COUNT DECREASED [None]
